FAERS Safety Report 5374000-1 (Version None)
Quarter: 2007Q2

REPORT INFORMATION
  Report Type: 
  Country: None (occurrence: None)
  Receive Date: 20070628
  Receipt Date: 20070620
  Transmission Date: 20071010
  Serious: Yes (Life-Threatening, Hospitalization, Disabling, Other)
  Sender: FDA-Public Use
  Company Number: IE-MERCK-0508GBR00053

PATIENT
  Age: 52 Year
  Sex: Female

DRUGS (2)
  1. FOSAMAX [Suspect]
     Indication: OSTEOPOROSIS
     Route: 048
     Dates: start: 20040501, end: 20050201
  2. NIMESULIDE [Suspect]
     Indication: ARTHRITIS
     Route: 065
     Dates: start: 20010518, end: 20050201

REACTIONS (6)
  - ADVERSE EVENT [None]
  - ARTERIAL HAEMORRHAGE [None]
  - DRUG INTERACTION [None]
  - HAEMATEMESIS [None]
  - MULTIPLE SCLEROSIS [None]
  - ULCER [None]
